FAERS Safety Report 6494212-3 (Version None)
Quarter: 2009Q4

REPORT INFORMATION
  Report Type: 
  Country: None (occurrence: None)
  Receive Date: 20091214
  Receipt Date: 20090122
  Transmission Date: 20100525
  Serious: No
  Sender: FDA-Public Use
  Company Number: US-BRISTOL-MYERS SQUIBB COMPANY-14479596

PATIENT
  Age: 32 Year
  Sex: Female
  Weight: 82 kg

DRUGS (2)
  1. ABILIFY [Suspect]
     Indication: THINKING ABNORMAL
     Dates: end: 20081101
  2. ABILIFY [Suspect]
     Indication: DEPRESSION
     Dates: end: 20081101

REACTIONS (3)
  - COUGH [None]
  - DYSPHAGIA [None]
  - TREMOR [None]
